FAERS Safety Report 15129215 (Version 1)
Quarter: 2018Q3

REPORT INFORMATION
  Report Type: Spontaneous
  Country: US (occurrence: US)
  Receive Date: 20180711
  Receipt Date: 20180711
  Transmission Date: 20181010
  Serious: No
  Sender: FDA-Public Use
  Company Number: US-PFIZER INC-2018278462

PATIENT
  Age: 68 Year
  Sex: Female
  Weight: 50 kg

DRUGS (1)
  1. IBRANCE [Suspect]
     Active Substance: PALBOCICLIB
     Indication: BREAST CANCER FEMALE
     Dosage: 100 MG, CYCLIC [DAILY 1?21/DAYS]
     Route: 048
     Dates: start: 20180518

REACTIONS (3)
  - Nausea [Unknown]
  - Abdominal pain upper [Unknown]
  - Pruritus generalised [Unknown]

NARRATIVE: CASE EVENT DATE: 2018
